FAERS Safety Report 11520090 (Version 1)
Quarter: 2015Q3

REPORT INFORMATION
  Report Type: Spontaneous
  Country: US (occurrence: US)
  Receive Date: 20150918
  Receipt Date: 20150918
  Transmission Date: 20151125
  Serious: No
  Sender: FDA-Public Use
  Company Number: US-RB-070554-14

PATIENT

DRUGS (2)
  1. MUCINEX [Suspect]
     Active Substance: GUAIFENESIN
     Dosage: 600MG. PATIENT TOOK TOTAL OF 7 PILLS FROM 9-NOV-2014, DRUG WAS LAST USED ON 12-NOV-2014,FREQUENCY UN
     Route: 065
     Dates: start: 20141112
  2. MUCINEX [Suspect]
     Active Substance: GUAIFENESIN
     Indication: PRODUCT USED FOR UNKNOWN INDICATION
     Dosage: 600MG. DRUG WAS LAST USED ON 10-NOV-2014, PATIENT TOOK PILLS AT A FREQUENCY OF 1-2 TIMES PER DAY,FRE
     Route: 065
     Dates: start: 20141109, end: 20141110

REACTIONS (1)
  - Headache [Not Recovered/Not Resolved]

NARRATIVE: CASE EVENT DATE: 20141109
